FAERS Safety Report 4614824-9 (Version None)
Quarter: 2005Q1

REPORT INFORMATION
  Report Type: 
  Country: None (occurrence: None)
  Receive Date: 20050322
  Receipt Date: 20050314
  Transmission Date: 20050727
  Serious: Yes (Other)
  Sender: FDA-Public Use
  Company Number: PHFR2005GB01218

PATIENT
  Age: 56 Year
  Sex: Female

DRUGS (1)
  1. ESTRADERM [Suspect]
     Indication: HORMONE REPLACEMENT THERAPY
     Dosage: 25 MCG/HOUR
     Route: 061
     Dates: start: 20050209, end: 20050218

REACTIONS (3)
  - APPLICATION SITE DISCHARGE [None]
  - APPLICATION SITE EXCORIATION [None]
  - APPLICATION SITE VESICLES [None]
